FAERS Safety Report 9054883 (Version 1)
Quarter: 2013Q1

REPORT INFORMATION
  Report Type: Spontaneous
  Country: US (occurrence: US)
  Receive Date: 20130208
  Receipt Date: 20130208
  Transmission Date: 20140127
  Serious: No
  Sender: FDA-Public Use
  Company Number: US-PFIZER INC-2013051555

PATIENT
  Age: 34 Year
  Sex: Male
  Weight: 81.63 kg

DRUGS (2)
  1. PRISTIQ [Suspect]
     Indication: ANXIETY
     Dosage: 50 MG, 1X/DAY
     Dates: start: 2012
  2. AUBAGIO [Interacting]
     Indication: MULTIPLE SCLEROSIS
     Dosage: 14 MG, 1X/DAY
     Dates: start: 2012, end: 2013

REACTIONS (3)
  - Off label use [Not Recovered/Not Resolved]
  - Drug ineffective for unapproved indication [Recovered/Resolved]
  - Drug interaction [Recovered/Resolved]
